FAERS Safety Report 18807497 (Version 1)
Quarter: 2021Q1

REPORT INFORMATION
  Report Type: Other
  Country: CA (occurrence: CA)
  Receive Date: 20210129
  Receipt Date: 20210129
  Transmission Date: 20210419
  Serious: Yes (Other)
  Sender: FDA-Public Use
  Company Number: CA-CELLTRION INC.-2021CA000816

PATIENT

DRUGS (7)
  1. ESBRIET [Suspect]
     Active Substance: PIRFENIDONE
     Indication: IDIOPATHIC PULMONARY FIBROSIS
     Dosage: 534.0 MILLIGRAM, 3 EVERY 1 DAYS
     Route: 048
  2. RITUXIMAB (UNKNOWN) [Suspect]
     Active Substance: RITUXIMAB
     Indication: DIFFUSE LARGE B-CELL LYMPHOMA
     Route: 041
  3. ESBRIET [Suspect]
     Active Substance: PIRFENIDONE
     Dosage: 801.0 MILLIGRAM, 3 EVERY 1 DAYS
     Route: 048
  4. ESBRIET [Suspect]
     Active Substance: PIRFENIDONE
     Dosage: 801.0 MILLIGRAM, 3 EVERY 1 DAYS
     Route: 048
  5. ESBRIET [Suspect]
     Active Substance: PIRFENIDONE
     Dosage: 801.0 MILLIGRAM, 3 EVERY 1 DAYS
     Route: 048
  6. RABEPRAZOLE [Concomitant]
     Active Substance: RABEPRAZOLE
     Indication: DYSPEPSIA
     Dosage: 20.0 MILLIGRAM, 2 EVERY 1 DAYS
     Route: 048
  7. ESBRIET [Suspect]
     Active Substance: PIRFENIDONE
     Dosage: 267.0 MILLIGRAM, 3 EVERY 1 DAYS
     Route: 048

REACTIONS (4)
  - Infection [Unknown]
  - Interstitial lung disease [Unknown]
  - Hiatus hernia [Unknown]
  - Pulmonary mass [Unknown]
